FAERS Safety Report 10301972 (Version 2)
Quarter: 2014Q4

REPORT INFORMATION
  Report Type: Spontaneous
  Country: JP (occurrence: None)
  Receive Date: 20140709
  Receipt Date: 20141203
  Transmission Date: 20150528
  Serious: Yes (Hospitalization)
  Sender: FDA-Public Use
  Company Number: 2014RN000029

PATIENT
  Age: 72 Year
  Sex: Female

DRUGS (8)
  1. OLMETEC (OLMESARTAN MEDOXOMIL) [Concomitant]
     Active Substance: OLMESARTAN MEDOXOMIL
  2. ACYCLOVIR (ACYCLOVIR) TABLET [Suspect]
     Active Substance: ACYCLOVIR
     Indication: OPHTHALMIC HERPES SIMPLEX
     Route: 048
     Dates: start: 20130603, end: 20130607
  3. ADALAT (NIFEDIPINE) [Concomitant]
  4. DEPAKENE-R (VALPROIC  SODIUM) [Concomitant]
  5. ALFACALCIDOL (ALFACALCIDOL) [Concomitant]
  6. PYRAMIDE (PYRAZINAMIDE) [Concomitant]
  7. EBUTOL (ETHAMBUTOL) [Concomitant]
  8. FOSRENOL (LATHANIUM CARBONATE) [Concomitant]

REACTIONS (4)
  - Altered state of consciousness [None]
  - Hypertension [None]
  - Overdose [None]
  - Depressed level of consciousness [None]

NARRATIVE: CASE EVENT DATE: 20130605
